FAERS Safety Report 6425683-6 (Version None)
Quarter: 2009Q4

REPORT INFORMATION
  Report Type: 
  Country: None (occurrence: None)
  Receive Date: 20091103
  Receipt Date: 20091020
  Transmission Date: 20100525
  Serious: Yes (Hospitalization, Other)
  Sender: FDA-Public Use
  Company Number: PHHY2009JP17694

PATIENT
  Sex: Male

DRUGS (2)
  1. GLEEVEC [Suspect]
     Indication: CHRONIC MYELOID LEUKAEMIA
     Dosage: 400 MG DAILY
     Route: 048
     Dates: start: 20061027, end: 20080428
  2. HYDROXYCARBAMIDE [Concomitant]
     Dosage: 20 MG, UNK
     Route: 048
     Dates: start: 20070201, end: 20090201

REACTIONS (10)
  - ABDOMINAL ADHESIONS [None]
  - ABDOMINAL PAIN [None]
  - BACK PAIN [None]
  - GASTRIC CANCER [None]
  - HAEMATOCHEZIA [None]
  - HYPOXIA [None]
  - ILEUS [None]
  - INTERSTITIAL LUNG DISEASE [None]
  - POLYPECTOMY [None]
  - VOMITING [None]
